FAERS Safety Report 7814432-2 (Version None)
Quarter: 2011Q4

REPORT INFORMATION
  Report Type: 
  Country: None (occurrence: None)
  Receive Date: 20111014
  Receipt Date: 20111011
  Transmission Date: 20120403
  Serious: Yes (Other)
  Sender: FDA-Public Use
  Company Number: PHHY2011NO73034

PATIENT
  Age: 64 Year
  Sex: Female

DRUGS (4)
  1. VOLTAREN [Suspect]
     Indication: PAIN IN EXTREMITY
     Dosage: 1 DF, BID, USED PERIODICALLY
     Route: 048
     Dates: start: 20101001
  2. VOLTAREN [Suspect]
     Dosage: UNK UKN, UNK
     Route: 048
  3. PARALGIN FORTE [Concomitant]
  4. PINEX [Concomitant]

REACTIONS (1)
  - MENTAL DISORDER [None]
